FAERS Safety Report 7147821-2 (Version None)
Quarter: 2010Q4

REPORT INFORMATION
  Report Type: 
  Country: None (occurrence: None)
  Receive Date: 20101206
  Receipt Date: 20101206
  Transmission Date: 20110411
  Serious: Yes (Life-Threatening)
  Sender: FDA-Public Use
  Company Number: None

PATIENT
  Age: 54 Year
  Sex: Male
  Weight: 71.6683 kg

DRUGS (1)
  1. TRAZODONE HCL [Suspect]
     Indication: POST-TRAUMATIC STRESS DISORDER
     Dosage: 100MG QHS PO
     Route: 048
     Dates: start: 20071101, end: 20101130

REACTIONS (5)
  - DIPLOPIA [None]
  - MYOPIA [None]
  - QUALITY OF LIFE DECREASED [None]
  - SLEEP DISORDER [None]
  - VISION BLURRED [None]
